FAERS Safety Report 9381594 (Version 2)
Quarter: 2013Q3

REPORT INFORMATION
  Report Type: Spontaneous
  Country: KR (occurrence: KR)
  Receive Date: 20130703
  Receipt Date: 20130715
  Transmission Date: 20140515
  Serious: Yes (Hospitalization, Other)
  Sender: FDA-Public Use
  Company Number: KR-JNJFOC-20130613353

PATIENT
  Sex: 0

DRUGS (7)
  1. INFLIXIMAB, RECOMBINANT [Suspect]
     Indication: CROHN^S DISEASE
     Route: 042
     Dates: start: 200303, end: 201102
  2. STEROIDS NOS [Concomitant]
     Route: 065
  3. 6 MP- MERCAPTOPURINE [Concomitant]
     Route: 065
  4. AZATHIOPRINE [Concomitant]
     Route: 065
  5. METHOTREXATE [Concomitant]
     Route: 065
  6. 5-AMINOSALICYLIC ACID [Concomitant]
     Route: 065
  7. HYDROCORTISONE [Concomitant]
     Indication: PREMEDICATION
     Route: 042

REACTIONS (8)
  - Pulmonary tuberculosis [Unknown]
  - Infusion related reaction [Unknown]
  - Therapeutic response decreased [Unknown]
  - Myalgia [Unknown]
  - Influenza like illness [Unknown]
  - Arthralgia [Unknown]
  - Pruritus [Unknown]
  - Rash [Unknown]
